FAERS Safety Report 8126864-6 (Version None)
Quarter: 2012Q1

REPORT INFORMATION
  Report Type: 
  Country: None (occurrence: None)
  Receive Date: 20120210
  Receipt Date: 20120206
  Transmission Date: 20120608
  Serious: Yes (Hospitalization, Other)
  Sender: FDA-Public Use
  Company Number: US-PFIZER INC-2011233616

PATIENT
  Sex: Female

DRUGS (3)
  1. DILANTIN [Suspect]
     Indication: CONVULSION
     Dosage: 75 MG, 2X/DAY
     Route: 048
     Dates: start: 19970705
  2. DILANTIN [Suspect]
     Dosage: 125 MG/5 CC HALF TEA SPOON
     Route: 048
     Dates: start: 19970707
  3. DILANTIN-125 [Suspect]
     Dosage: UNK

REACTIONS (1)
  - STEVENS-JOHNSON SYNDROME [None]
